FAERS Safety Report 15591665 (Version 1)
Quarter: 2018Q4

REPORT INFORMATION
  Report Type: Report from Study
  Country: US (occurrence: US)
  Receive Date: 20181107
  Receipt Date: 20181107
  Transmission Date: 20190205
  Serious: No
  Sender: FDA-Public Use
  Company Number: PHEH2018US046643

PATIENT
  Age: 72 Year
  Sex: Male
  Weight: 88.45 kg

DRUGS (2)
  1. COSENTYX [Suspect]
     Active Substance: SECUKINUMAB
     Dosage: 300 MG (2 SYRINGES), AT DAY 28
     Route: 058
     Dates: start: 20181021
  2. COSENTYX [Suspect]
     Active Substance: SECUKINUMAB
     Indication: PSORIASIS
     Dosage: 300 MG (2 SYRINGES), AT DAY 28
     Route: 058
     Dates: start: 201807

REACTIONS (2)
  - Inappropriate schedule of product administration [Unknown]
  - Rash generalised [Unknown]

NARRATIVE: CASE EVENT DATE: 201807
